FAERS Safety Report 8962181 (Version 2)
Quarter: 2014Q2

REPORT INFORMATION
  Report Type: Spontaneous
  Country: US (occurrence: US)
  Receive Date: 20121212
  Receipt Date: 20131024
  Transmission Date: 20141212
  Serious: Yes (Other)
  Sender: FDA-Public Use
  Company Number: US-PFIZER INC-2012242920

PATIENT
  Age: 55 Year
  Sex: Male
  Weight: 90.7 kg

DRUGS (4)
  1. XIAFLEX [Suspect]
     Indication: DUPUYTREN^S CONTRACTURE
     Dosage: 0.58 MG, 1X/DAY
     Route: 026
     Dates: start: 20120919, end: 20120919
  2. LIDOCAINE HCL [Suspect]
     Dosage: 1% 3CC, UNK
     Dates: start: 20120919, end: 20120919
  3. MARCAINE [Suspect]
     Dosage: 0.25% 3 CC, UNK
     Dates: start: 20120919, end: 20120919
  4. PRAVACHOL [Concomitant]
     Indication: BLOOD CHOLESTEROL INCREASED
     Dosage: UNK
     Route: 048

REACTIONS (3)
  - Presyncope [Recovered/Resolved]
  - Dizziness postural [Unknown]
  - Malaise [Unknown]
